FAERS Safety Report 8114558-2 (Version None)
Quarter: 2012Q1

REPORT INFORMATION
  Report Type: 
  Country: None (occurrence: None)
  Receive Date: 20120206
  Receipt Date: 20120201
  Transmission Date: 20120608
  Serious: Yes (Other)
  Sender: FDA-Public Use
  Company Number: US-PFIZER INC-2012028295

PATIENT
  Sex: Female
  Weight: 43.991 kg

DRUGS (1)
  1. LO/OVRAL-28 [Suspect]
     Indication: HORMONE THERAPY
     Dosage: UNK, 1X/DAY
     Route: 048
     Dates: start: 20110701, end: 20111001

REACTIONS (3)
  - NAUSEA [None]
  - MALAISE [None]
  - MENORRHAGIA [None]
